FAERS Safety Report 10034164 (Version 1)
Quarter: 2014Q1

REPORT INFORMATION
  Report Type: Spontaneous
  Country: US (occurrence: None)
  Receive Date: 20140324
  Receipt Date: 20140324
  Transmission Date: 20141002
  Serious: Yes (Hospitalization)
  Sender: FDA-Public Use
  Company Number: None

PATIENT
  Sex: Male

DRUGS (3)
  1. MEKINIST [Suspect]
     Dosage: 2MG QD PO?1/20/204-PRESENT
     Route: 048
  2. LASIX [Concomitant]
  3. POTASSIUM [Concomitant]

REACTIONS (2)
  - Rash [None]
  - Drug dose omission [None]
